FAERS Safety Report 4614098-9 (Version None)
Quarter: 2005Q1

REPORT INFORMATION
  Report Type: 
  Country: None (occurrence: None)
  Receive Date: 20050316
  Receipt Date: 20050301
  Transmission Date: 20050727
  Serious: Yes (Other)
  Sender: FDA-Public Use
  Company Number: 2005025587

PATIENT
  Age: 25 Year
  Sex: Female
  Weight: 69 kg

DRUGS (1)
  1. DEPO-RALOVERA (MEDROXYPROGESTERONE ACETATE) [Suspect]
     Indication: CONTRACEPTION
     Dosage: 150 MG (150 MG, EVERY THREEMONTHS, FIRST INJECTION), INTRAMUSCULAR
     Route: 030
     Dates: start: 20050115, end: 20050115

REACTIONS (3)
  - ANXIETY [None]
  - BREAST PAIN [None]
  - SWELLING [None]
